FAERS Safety Report 15082705 (Version 3)
Quarter: 2019Q2

REPORT INFORMATION
  Report Type: Report from Study
  Country: US (occurrence: US)
  Receive Date: 20180628
  Receipt Date: 20190422
  Transmission Date: 20190711
  Serious: Yes (Other)
  Sender: FDA-Public Use
  Company Number: US-MYLANLABS-2018M1045372

PATIENT
  Age: 9 Year
  Sex: Male
  Weight: 63.5 kg

DRUGS (3)
  1. DIVALPROEX SODIUM. [Suspect]
     Active Substance: DIVALPROEX SODIUM
     Indication: SEIZURE
     Dosage: 2 DOSAGE FORM, BID
     Route: 048
  2. GLATIRAMER ACETATE INJECTION [Suspect]
     Active Substance: GLATIRAMER ACETATE
     Indication: RELAPSING-REMITTING MULTIPLE SCLEROSIS
     Dosage: 40 MG, 3XW
     Route: 058
  3. DIVALPROEX SODIUM. [Suspect]
     Active Substance: DIVALPROEX SODIUM
     Dosage: 5 DOSAGE FORM, QD
     Route: 048

REACTIONS (7)
  - Headache [Unknown]
  - Abdominal pain upper [Unknown]
  - Mass [Unknown]
  - Seizure [Recovered/Resolved]
  - Streptococcal infection [Unknown]
  - Off label use [Unknown]
  - Behaviour disorder [Not Recovered/Not Resolved]

NARRATIVE: CASE EVENT DATE: 20180615
